FAERS Safety Report 15190664 (Version 4)
Quarter: 2020Q2

REPORT INFORMATION
  Report Type: Spontaneous
  Country: US (occurrence: US)
  Receive Date: 20180724
  Receipt Date: 20200615
  Transmission Date: 20200713
  Serious: Yes (Death, Life-Threatening, Hospitalization, Other)
  Sender: FDA-Public Use
  Company Number: US-PFIZER INC-2018295411

PATIENT
  Age: 28 Year
  Sex: Female

DRUGS (5)
  1. ALCOHOL. [Concomitant]
     Active Substance: ALCOHOL
     Dosage: UNK
  2. ASPIRIN /00002701/ [Concomitant]
     Active Substance: ASPIRIN
     Dosage: UNK
  3. ACETAMINOPHEN. [Concomitant]
     Active Substance: ACETAMINOPHEN
     Dosage: UNK
  4. IBUPROFEN. [Concomitant]
     Active Substance: IBUPROFEN
     Dosage: UNK
  5. PROPANOLOL HCL [Suspect]
     Active Substance: PROPRANOLOL HYDROCHLORIDE
     Dosage: UNK
     Route: 048

REACTIONS (10)
  - Hypoxic-ischaemic encephalopathy [Fatal]
  - Intentional overdose [Unknown]
  - Circulatory collapse [Unknown]
  - Coma [Unknown]
  - Acute respiratory failure [Unknown]
  - Shock [Recovered/Resolved]
  - Toxicity to various agents [Unknown]
  - Brain death [Fatal]
  - Cardiac arrest [Unknown]
  - Cardio-respiratory arrest [Unknown]
